FAERS Safety Report 19630352 (Version 1)
Quarter: 2021Q3

REPORT INFORMATION
  Report Type: Spontaneous
  Country: US (occurrence: US)
  Receive Date: 20210728
  Receipt Date: 20210728
  Transmission Date: 20211014
  Serious: No
  Sender: FDA-Public Use
  Company Number: US-SA-2021SA243006

PATIENT
  Sex: Female

DRUGS (1)
  1. LEMTRADA [Suspect]
     Active Substance: ALEMTUZUMAB
     Route: 065

REACTIONS (9)
  - Chest pain [Unknown]
  - Hyperhidrosis [Unknown]
  - Thyroid disorder [Unknown]
  - Herpes zoster [Unknown]
  - Unevaluable event [Unknown]
  - Osteoporosis [Unknown]
  - Feeling hot [Unknown]
  - Hot flush [Unknown]
  - Osteopenia [Unknown]
